FAERS Safety Report 20976181 (Version 1)
Quarter: 2022Q2

REPORT INFORMATION
  Report Type: Spontaneous
  Country: US (occurrence: None)
  Receive Date: 20220617
  Receipt Date: 20220617
  Transmission Date: 20220721
  Serious: Yes (unspecified)
  Sender: FDA-Public Use
  Company Number: None

PATIENT
  Age: 64 Year
  Sex: Female
  Weight: 56.7 kg

DRUGS (2)
  1. SPF 30 TINTED MINERAL MOISTURIZER SAND [Suspect]
     Active Substance: ZINC OXIDE
     Indication: Prophylaxis against solar radiation
     Dosage: 1/2 -1 TSP  ONCE DAILY  ON THE FACE SKIN ?
     Route: 050
     Dates: start: 20080708, end: 20220517
  2. DAILY MULTI VITAMIN [Concomitant]

REACTIONS (3)
  - Scab [None]
  - Impaired healing [None]
  - Skin cancer [None]

NARRATIVE: CASE EVENT DATE: 20220121
